FAERS Safety Report 23269093 (Version 1)
Quarter: 2023Q4

REPORT INFORMATION
  Report Type: Other
  Country: GB (occurrence: GB)
  Receive Date: 20231206
  Receipt Date: 20231206
  Transmission Date: 20240110
  Serious: Yes (Other)
  Sender: FDA-Public Use
  Company Number: GB-LAURUS LABS LIMITED-2023LAU000113

PATIENT
  Age: 48 Year
  Sex: Male

DRUGS (1)
  1. METFORMIN [Suspect]
     Active Substance: METFORMIN HYDROCHLORIDE
     Indication: Diabetes mellitus
     Dosage: 2000 MILLIGRAM
     Route: 065

REACTIONS (2)
  - Acute painful neuropathy of rapid glycaemic control [Unknown]
  - Sleep deficit [Unknown]
